FAERS Safety Report 11461518 (Version 1)
Quarter: 2015Q3

REPORT INFORMATION
  Report Type: Spontaneous
  Country: US (occurrence: US)
  Receive Date: 20150831
  Receipt Date: 20150831
  Transmission Date: 20151125
  Serious: Yes (Hospitalization)
  Sender: FDA-Public Use
  Company Number: US-ELI_LILLY_AND_COMPANY-US201007000833

PATIENT
  Age: 75 Year
  Sex: Female
  Weight: 76.64 kg

DRUGS (9)
  1. ASA [Concomitant]
     Active Substance: ASPIRIN
     Dosage: 81 MG, DAILY (1/D)
  2. CYMBALTA [Suspect]
     Active Substance: DULOXETINE HYDROCHLORIDE
     Indication: DEPRESSION
     Dosage: 1 D/F, UNKNOWN
     Route: 065
     Dates: start: 20100601
  3. CYMBALTA [Suspect]
     Active Substance: DULOXETINE HYDROCHLORIDE
     Dosage: 1 D/F, UNKNOWN
     Route: 065
  4. KLONOPIN [Concomitant]
     Active Substance: CLONAZEPAM
     Dosage: 0.5 MG, 2/D
  5. REMERON [Concomitant]
     Active Substance: MIRTAZAPINE
     Dosage: 30 MG, DAILY (1/D)
  6. GLEEVEC [Concomitant]
     Active Substance: IMATINIB MESYLATE
     Dosage: 400 MG, DAILY (1/D)
  7. PLENDIL [Concomitant]
     Active Substance: FELODIPINE
     Dosage: 5 MG, UNK
  8. ICAR-C PLUS [Concomitant]
  9. VITAMIN B12 [Concomitant]
     Active Substance: CYANOCOBALAMIN
     Dosage: 1 D/F, DAILY (1/D)

REACTIONS (1)
  - Hyponatraemia [Recovered/Resolved]

NARRATIVE: CASE EVENT DATE: 20100617
